FAERS Safety Report 7278842 (Version 9)
Quarter: 2016Q2

REPORT INFORMATION
  Report Type: Report from Study
  Country: RU (occurrence: RU)
  Receive Date: 20100215
  Receipt Date: 20160428
  Transmission Date: 20160815
  Serious: Yes (Hospitalization)
  Sender: FDA-Public Use
  Company Number: PHHO2010RU01605

PATIENT
  Age: 54 Year
  Sex: Male
  Weight: 112 kg

DRUGS (3)
  1. ALISKIREN [Suspect]
     Active Substance: ALISKIREN
     Indication: CARDIAC FAILURE
     Dosage: 300 MG, UNK
     Route: 048
     Dates: start: 20091217, end: 20100124
  2. ALISKIREN [Suspect]
     Active Substance: ALISKIREN
     Dosage: 300 MG, UNK
     Route: 048
     Dates: start: 20100205
  3. ALISKIREN [Suspect]
     Active Substance: ALISKIREN
     Dosage: NO TREATMENT
     Route: 065
     Dates: start: 20100125, end: 20100205

REACTIONS (10)
  - Ventricular dysfunction [Recovering/Resolving]
  - Fatigue [Recovering/Resolving]
  - Disease progression [Recovering/Resolving]
  - Bundle branch block left [Recovering/Resolving]
  - Peripheral venous disease [Recovering/Resolving]
  - Asthenia [Recovering/Resolving]
  - Myocardial ischaemia [Recovering/Resolving]
  - Hypotension [Recovering/Resolving]
  - Chest pain [Recovering/Resolving]
  - Dyspnoea [Recovering/Resolving]

NARRATIVE: CASE EVENT DATE: 20100124
